FAERS Safety Report 5959924-6 (Version None)
Quarter: 2008Q4

REPORT INFORMATION
  Report Type: 
  Country: None (occurrence: None)
  Receive Date: 20081120
  Receipt Date: 20081110
  Transmission Date: 20090506
  Serious: Yes (Hospitalization, Other)
  Sender: FDA-Public Use
  Company Number: DE-BIOGENIDEC-2008BI029991

PATIENT
  Age: 60 Year
  Sex: Female
  Weight: 65 kg

DRUGS (4)
  1. TYSABRI [Suspect]
     Indication: MULTIPLE SCLEROSIS
     Route: 042
     Dates: start: 20080430
  2. ANTIHYPERTENSIVES [Concomitant]
  3. ANTI-MUSCARINIC BLADDER AGENTS [Concomitant]
  4. MULTI-VITAMINS [Concomitant]

REACTIONS (1)
  - BLADDER CANCER [None]
